FAERS Safety Report 8537694-5 (Version None)
Quarter: 2012Q3

REPORT INFORMATION
  Report Type: 
  Country: None (occurrence: None)
  Receive Date: 20120725
  Receipt Date: 20120720
  Transmission Date: 20120928
  Serious: Yes (Other)
  Sender: FDA-Public Use
  Company Number: PHHY2012BR042185

PATIENT
  Sex: Female

DRUGS (3)
  1. ALIVIUM (IBUPROFEN) [Concomitant]
     Indication: PAIN
  2. HYGROTON [Suspect]
     Dosage: 1 DF, DAILY
     Route: 048
  3. HYGROTON [Suspect]
     Indication: HYPERTENSION

REACTIONS (1)
  - HERPES VIRUS INFECTION [None]
